FAERS Safety Report 5332848-3 (Version None)
Quarter: 2007Q2

REPORT INFORMATION
  Report Type: 
  Country: None (occurrence: None)
  Receive Date: 20070521
  Receipt Date: 20070517
  Transmission Date: 20071010
  Serious: Yes (Death, Life-Threatening, Other)
  Sender: FDA-Public Use
  Company Number: 2007SP002214

PATIENT
  Age: 77 Year
  Sex: Male
  Weight: 75 kg

DRUGS (11)
  1. TEMODAL [Suspect]
     Indication: GLIOBLASTOMA MULTIFORME
     Dosage: 75 MG/M2; QD; PO
     Route: 048
     Dates: start: 20061121, end: 20070103
  2. FERON (CON.) [Concomitant]
  3. MUCOSTA (CON.) [Concomitant]
  4. GASTER (CON.) [Concomitant]
  5. MEBALOTIN (CON.) [Concomitant]
  6. AMLODIN (CON.) [Concomitant]
  7. NU-LOTAN (CON.) [Concomitant]
  8. EXCEGRAN (CON.) [Concomitant]
  9. GLYCYRON (CON.) [Concomitant]
  10. URINORM (CON.) [Concomitant]
  11. MAGNESIUM ODIXE (CON.) [Concomitant]

REACTIONS (2)
  - PLATELET COUNT DECREASED [None]
  - SEPSIS [None]
